FAERS Safety Report 14852489 (Version 1)
Quarter: 2018Q2

REPORT INFORMATION
  Report Type: Other
  Country: US (occurrence: US)
  Receive Date: 20180507
  Receipt Date: 20180507
  Transmission Date: 20180711
  Serious: Yes (Hospitalization)
  Sender: FDA-Public Use
  Company Number: US-RICOLA USA INC.-2047299

PATIENT
  Age: 8 Year
  Sex: Male
  Weight: 27.27 kg

DRUGS (1)
  1. NATURAL HONEY HERB COUGH SUPPRESSANT THROAT DROPS [Suspect]
     Active Substance: MENTHOL
     Indication: ANTITUSSIVE THERAPY
     Dates: start: 20180504, end: 20180504

REACTIONS (4)
  - Anaphylactic reaction [Recovering/Resolving]
  - Dyspnoea [Recovering/Resolving]
  - Urticaria [Recovered/Resolved]
  - Wheezing [Recovering/Resolving]

NARRATIVE: CASE EVENT DATE: 20180504
